FAERS Safety Report 6111417-1 (Version None)
Quarter: 2009Q1

REPORT INFORMATION
  Report Type: 
  Country: None (occurrence: None)
  Receive Date: 20090309
  Receipt Date: 20090219
  Transmission Date: 20090719
  Serious: Yes (Death)
  Sender: FDA-Public Use
  Company Number: A-JP2008-21146

PATIENT
  Age: 87 Year
  Sex: Female

DRUGS (5)
  1. TRACLEER [Suspect]
     Indication: PULMONARY ARTERIAL HYPERTENSION
     Dosage: 62.5 MG, QD, ORAL
     Route: 048
     Dates: start: 20080517, end: 20080520
  2. WARFARIN SODIUM [Concomitant]
  3. DILTIAZEM HCL [Concomitant]
  4. FUROSEMIDE [Concomitant]
  5. OXYGEN (OXYGEN) [Concomitant]

REACTIONS (6)
  - ANOREXIA [None]
  - CARDIAC ARREST [None]
  - CONDITION AGGRAVATED [None]
  - DISEASE PROGRESSION [None]
  - PULMONARY ARTERIAL HYPERTENSION [None]
  - RESPIRATORY ARREST [None]
